FAERS Safety Report 19213279 (Version 1)
Quarter: 2021Q2

REPORT INFORMATION
  Report Type: Spontaneous
  Country: US (occurrence: US)
  Receive Date: 20210504
  Receipt Date: 20210504
  Transmission Date: 20210717
  Serious: Yes (Hospitalization)
  Sender: FDA-Public Use
  Company Number: US-ASTRAZENECA-2021A365489

PATIENT
  Sex: Female
  Weight: 76.7 kg

DRUGS (1)
  1. CRESTOR [Suspect]
     Active Substance: ROSUVASTATIN CALCIUM
     Indication: BLOOD CHOLESTEROL
     Route: 048
     Dates: start: 2017, end: 202104

REACTIONS (12)
  - Nausea [Unknown]
  - Limb discomfort [Unknown]
  - Dizziness [Unknown]
  - Hyperactive pharyngeal reflex [Unknown]
  - Vertigo [Unknown]
  - Feeling hot [Unknown]
  - Inflammation [Unknown]
  - Pain in extremity [Unknown]
  - Rash macular [Unknown]
  - Hypoaesthesia [Unknown]
  - Fall [Unknown]
  - Fatigue [Unknown]
